FAERS Safety Report 6929337-9 (Version None)
Quarter: 2010Q3

REPORT INFORMATION
  Report Type: 
  Country: None (occurrence: None)
  Receive Date: 20100813
  Receipt Date: 20100729
  Transmission Date: 20110219
  Serious: Yes (Hospitalization)
  Sender: FDA-Public Use
  Company Number: AUR-APL-2010-01944

PATIENT
  Sex: Female
  Weight: 96.1626 kg

DRUGS (23)
  1. LISINOPRIL [Suspect]
     Dosage: 40MG
     Dates: start: 20071217
  2. METOPROLOL [Suspect]
     Indication: HYPERTENSION
     Dosage: 100MG, DAILY
     Dates: start: 20050101
  3. STUDY DRUG [Suspect]
     Indication: OSTEOARTHRITIS
     Dosage: TID- ORAL
     Route: 048
     Dates: start: 20100111
  4. STUDY DRUG [Suspect]
     Indication: RHEUMATOID ARTHRITIS
     Dosage: TID- ORAL
     Route: 048
     Dates: start: 20100111
  5. NEXIUM [Concomitant]
  6. CRESTOR [Concomitant]
  7. ACTONEL [Concomitant]
  8. DICLOFENAC [Concomitant]
  9. MURO 128 (TAPER) [Concomitant]
  10. BRIMODINE TARTRATE 0.2% [Concomitant]
  11. TRAVATAN [Concomitant]
  12. FUROSEMIDE [Concomitant]
  13. POTASSIUM CHLORIDE [Concomitant]
  14. PRAVASTATIN [Concomitant]
  15. NAPROXEN [Concomitant]
  16. HYDROCODONE BITARTRATE AND ACETAMINOPHEN [Concomitant]
  17. TYLENOL (CAPLET) [Concomitant]
  18. ASPIRIN [Concomitant]
  19. CALTRATE + VIT D [Concomitant]
  20. VITAMIN E [Concomitant]
  21. ASCORBIC ACID [Concomitant]
  22. GARLIC [Concomitant]
  23. CENTRUM SILVER [Concomitant]

REACTIONS (5)
  - DIZZINESS [None]
  - DYSPNOEA [None]
  - FALL [None]
  - HEAD INJURY [None]
  - SYNCOPE [None]
